FAERS Safety Report 12804170 (Version 1)
Quarter: 2016Q4

REPORT INFORMATION
  Report Type: Report from Study
  Country: CA (occurrence: CA)
  Receive Date: 20161003
  Receipt Date: 20161003
  Transmission Date: 20170207
  Serious: Yes (Other)
  Sender: FDA-Public Use
  Company Number: CA-TAKEDA-2016TUS017310

PATIENT
  Age: 73 Year
  Sex: Male

DRUGS (15)
  1. VEDOLIZUMAB [Suspect]
     Active Substance: VEDOLIZUMAB
     Indication: COLITIS ULCERATIVE
     Dosage: 300 MG, UNK
     Route: 042
     Dates: start: 20151105
  2. BISOPROLOL [Concomitant]
     Active Substance: BISOPROLOL
     Dosage: 5 MG, QD
  3. TAMSULOSIN CR [Concomitant]
     Active Substance: TAMSULOSIN
     Dosage: 0.4 MG, QD
  4. PANTOPRAZOLE [Concomitant]
     Active Substance: PANTOPRAZOLE SODIUM
     Dosage: 40 MG, QD
  5. CLOPIDROGEL SANDOZ [Concomitant]
     Active Substance: CLOPIDOGREL BISULFATE
     Dosage: 75 MG, QD
  6. AAS [Concomitant]
     Active Substance: ASPIRIN
     Dosage: 80 MG, QD
  7. CORTIFOAM [Concomitant]
     Active Substance: HYDROCORTISONE ACETATE
     Dosage: UNK, QD
  8. ROSUVASTATIN. [Concomitant]
     Active Substance: ROSUVASTATIN
     Dosage: 20 MG, QD
  9. PRO RAMIPRIL [Concomitant]
     Dosage: 5 MG, QD
  10. MYRBETRIQ [Concomitant]
     Active Substance: MIRABEGRON
     Dosage: 25 MG, QD
  11. LORAZEPAM. [Concomitant]
     Active Substance: LORAZEPAM
     Dosage: 1 MG, QD
  12. SANDOZ FINASTERIDE [Concomitant]
     Dosage: 5 MG, QD
  13. SULFATE FERREUX [Concomitant]
     Dosage: 300 MG, QD
  14. SALOFALK [Concomitant]
     Active Substance: MESALAMINE
     Dosage: UNK UNK, BID
  15. ACETAMINOPHEN. [Concomitant]
     Active Substance: ACETAMINOPHEN
     Dosage: UNK UNK, BID

REACTIONS (1)
  - Bladder operation [Unknown]

NARRATIVE: CASE EVENT DATE: 20160915
